FAERS Safety Report 7587555-3 (Version None)
Quarter: 2011Q3

REPORT INFORMATION
  Report Type: 
  Country: None (occurrence: None)
  Receive Date: 20110704
  Receipt Date: 20110620
  Transmission Date: 20111222
  Serious: Yes (Other)
  Sender: FDA-Public Use
  Company Number: PHHY2011DE56118

PATIENT
  Sex: Male

DRUGS (1)
  1. DIOVAN HCT [Suspect]
     Dosage: 160 MG OF VALS AND 25 MG OF HYDRO
     Route: 048

REACTIONS (2)
  - ELECTROLYTE IMBALANCE [None]
  - ARRHYTHMIA [None]
